FAERS Safety Report 4405216-6 (Version None)
Quarter: 2004Q3

REPORT INFORMATION
  Report Type: 
  Country: None (occurrence: None)
  Receive Date: 20040722
  Receipt Date: 20040722
  Transmission Date: 20050211
  Serious: Yes (Hospitalization)
  Sender: FDA-Public Use
  Company Number: None

PATIENT
  Age: 73 Year
  Sex: Male
  Weight: 70.1 kg

DRUGS (17)
  1. FORTAZ [Suspect]
  2. DIPHENHYDRAMINE [Concomitant]
  3. TUBERCULIN PURIFIED PROTEIN DERIVIATIVE INJ SOLN [Concomitant]
  4. METHADONE HCL [Concomitant]
  5. TAMSULOSIN [Concomitant]
  6. SPIRONOLACTONE [Concomitant]
  7. SALMETEROL DISKUS [Concomitant]
  8. LACTULOSE [Concomitant]
  9. OMEPRAZOLE [Concomitant]
  10. MULTIVITAMINS/ZINC(CENTRUM) [Concomitant]
  11. FINASTERIDE [Concomitant]
  12. ENALAPRIL MALEATE [Concomitant]
  13. DIPYRIDAMOLE [Concomitant]
  14. BISACODYL [Concomitant]
  15. FENLAFAXINE [Concomitant]
  16. TEMAZEPAM [Concomitant]
  17. ALBUTEROL/IPRATROPIUM [Concomitant]

REACTIONS (1)
  - PRURITUS [None]
